FAERS Safety Report 5810808-3 (Version None)
Quarter: 2008Q3

REPORT INFORMATION
  Report Type: 
  Country: None (occurrence: None)
  Receive Date: 20080710
  Receipt Date: 20080627
  Transmission Date: 20090109
  Serious: Yes (Death, Hospitalization, Other)
  Sender: FDA-Public Use
  Company Number: 030217

PATIENT
  Age: 53 Year
  Sex: Male

DRUGS (12)
  1. AZITHROMYCIN [Suspect]
     Indication: UPPER RESPIRATORY TRACT INFECTION
     Dosage: 500 MG; 250 MG, QD
  2. AZITHROMYCIN [Suspect]
     Indication: UPPER RESPIRATORY TRACT INFECTION
     Dosage: 500 MG; 250 MG, QD
  3. WARFARIN SODIUM [Suspect]
     Indication: MITRAL VALVE REPAIR
     Dosage: 5 MG FOR 6 DAYS PER WEEK; 2.5 MG FOR ONE DAY PER WEEK
  4. PROPOXYPHENE HCL AND ACETAMINOPHEN (DEXTROPROPDXYPHENE  HYDROCHLORIDE) [Concomitant]
  5. DIGOXIN [Concomitant]
  6. PREDNISONE TAB [Concomitant]
  7. PHENYTOIN [Concomitant]
  8. FAMOTIDINE [Concomitant]
  9. HYDROXYCHLOROQUINE SULFATE [Concomitant]
  10. POTASSIUM CHLORIDE [Concomitant]
  11. ACETYLSALICYLIC ACID SRT [Concomitant]
  12. FUROSEMIDE [Concomitant]

REACTIONS (15)
  - ARRHYTHMIA SUPRAVENTRICULAR [None]
  - BLOOD ALBUMIN DECREASED [None]
  - BLOOD URIC ACID INCREASED [None]
  - CARDIAC ARREST [None]
  - CARDIAC FAILURE CONGESTIVE [None]
  - DRUG INTERACTION [None]
  - GENERAL PHYSICAL HEALTH DETERIORATION [None]
  - HAEMODIALYSIS [None]
  - HAEMOGLOBIN DECREASED [None]
  - INTERNATIONAL NORMALISED RATIO INCREASED [None]
  - LIVER FUNCTION TEST ABNORMAL [None]
  - MULTI-ORGAN FAILURE [None]
  - RENAL FAILURE ACUTE [None]
  - RESPIRATORY FAILURE [None]
  - UPPER RESPIRATORY TRACT INFECTION [None]
